FAERS Safety Report 6841860-4 (Version None)
Quarter: 2010Q3

REPORT INFORMATION
  Report Type: 
  Country: None (occurrence: None)
  Receive Date: 20100714
  Receipt Date: 20070820
  Transmission Date: 20110219
  Serious: No
  Sender: FDA-Public Use
  Company Number: US-PFIZER INC-2007058756

PATIENT
  Sex: Male
  Weight: 78.2 kg

DRUGS (9)
  1. CHANTIX [Suspect]
     Indication: SMOKING CESSATION THERAPY
  2. INSULIN [Concomitant]
  3. COZAAR [Concomitant]
  4. PREVACID [Concomitant]
  5. LACTULOSE [Concomitant]
  6. ZYRTEC [Concomitant]
  7. AMBIEN [Concomitant]
  8. VIAGRA [Concomitant]
  9. NADOLOL [Concomitant]

REACTIONS (5)
  - ABDOMINAL DISCOMFORT [None]
  - ANION GAP INCREASED [None]
  - FATIGUE [None]
  - NAUSEA [None]
  - SOMNOLENCE [None]
